FAERS Safety Report 5999454-9 (Version None)
Quarter: 2008Q4

REPORT INFORMATION
  Report Type: 
  Country: None (occurrence: None)
  Receive Date: 20081211
  Receipt Date: 20081211
  Transmission Date: 20090506
  Serious: Yes (Disabling, Other)
  Sender: FDA-Public Use
  Company Number: None

PATIENT
  Sex: Male
  Weight: 72.5755 kg

DRUGS (1)
  1. ISOSORBIDE MONONITRATE [Suspect]
     Indication: CARDIAC DISORDER
     Dosage: 30 MG ONCE A DAY
     Dates: start: 20081118

REACTIONS (7)
  - BACK INJURY [None]
  - DIZZINESS [None]
  - EYE PAIN [None]
  - FALL [None]
  - HEADACHE [None]
  - HYPOPHAGIA [None]
  - PRODUCT QUALITY ISSUE [None]
